FAERS Safety Report 15622061 (Version 2)
Quarter: 2019Q2

REPORT INFORMATION
  Report Type: Spontaneous
  Country: US (occurrence: US)
  Receive Date: 20181115
  Receipt Date: 20190617
  Transmission Date: 20190711
  Serious: No
  Sender: FDA-Public Use
  Company Number: US-PFIZER INC-2018465691

PATIENT
  Age: 62 Year
  Sex: Female
  Weight: 58.5 kg

DRUGS (3)
  1. LYRICA [Concomitant]
     Active Substance: PREGABALIN
     Dosage: 200 MG, 1X/DAY (200MG AT NIGHT)
  2. XANAX XR [Suspect]
     Active Substance: ALPRAZOLAM
     Indication: NERVE INJURY
     Dosage: 1 MG, 3X/DAY
  3. XANAX XR [Suspect]
     Active Substance: ALPRAZOLAM
     Dosage: UNK, 2X/DAY

REACTIONS (3)
  - Off label use [Unknown]
  - Drug ineffective for unapproved indication [Recovering/Resolving]
  - Rash [Unknown]
